FAERS Safety Report 8957039 (Version 2)
Quarter: 2015Q1

REPORT INFORMATION
  Report Type: Report from Study
  Country: FR (occurrence: FR)
  Receive Date: 20121211
  Receipt Date: 20150303
  Transmission Date: 20150721
  Serious: Yes (Hospitalization)
  Sender: FDA-Public Use
  Company Number: FR-ROCHE-576101

PATIENT
  Age: 46 Year
  Sex: Female

DRUGS (8)
  1. RITUXIMAB [Suspect]
     Active Substance: RITUXIMAB
     Route: 042
  2. ARAVA [Concomitant]
     Active Substance: LEFLUNOMIDE
     Indication: RHEUMATOID ARTHRITIS
     Dosage: DRUG REPORTED AS: ARAVA 20.
     Route: 048
  3. ACTONEL [Concomitant]
     Active Substance: RISEDRONATE SODIUM
     Indication: OSTEOPOROSIS
     Dosage: DRUG: ACTONEL 35 MG.
     Route: 048
  4. CORTANCYL [Concomitant]
     Active Substance: PREDNISONE
     Indication: RHEUMATOID ARTHRITIS
     Route: 048
  5. RITUXIMAB [Suspect]
     Active Substance: RITUXIMAB
     Indication: RHEUMATOID ARTHRITIS
     Dosage: DRUG REPORTED AS: MABTHERA POLYARTHRITIS?FORMULATION REPORTED AS: INJECTABLE SOLUTION.?INFUSION ON 0
     Route: 042
  6. OMEPRAZOLE. [Concomitant]
     Active Substance: OMEPRAZOLE
     Route: 048
  7. DENSICAL [Concomitant]
     Indication: OSTEOPOROSIS
     Route: 048
  8. FERO-GRAD [Concomitant]
     Dosage: DRUG REPORTED AS: FERO-GRAD VIT C.
     Route: 048

REACTIONS (7)
  - Dyspnoea at rest [Recovered/Resolved]
  - Invasive ductal breast carcinoma [Not Recovered/Not Resolved]
  - Malaise [Recovered/Resolved]
  - Infusion related reaction [Recovered/Resolved]
  - Ecchymosis [Recovered/Resolved]
  - Intraductal proliferative breast lesion [Recovered/Resolved]
  - Chest pain [Recovered/Resolved]

NARRATIVE: CASE EVENT DATE: 20060808
